FAERS Safety Report 5609263-8 (Version None)
Quarter: 2008Q1

REPORT INFORMATION
  Report Type: 
  Country: None (occurrence: None)
  Receive Date: 20080131
  Receipt Date: 20080124
  Transmission Date: 20080703
  Serious: Yes (Other)
  Sender: FDA-Public Use
  Company Number: US-JNJFOC-20080106549

PATIENT
  Sex: Female
  Weight: 77.11 kg

DRUGS (8)
  1. LEVAQUIN [Suspect]
     Indication: PNEUMONIA
     Route: 042
  2. LEVAQUIN [Suspect]
     Indication: BRONCHITIS
     Route: 042
  3. LEVAQUIN [Suspect]
     Route: 065
  4. LEVAQUIN [Suspect]
     Route: 065
  5. ASTHMA MEDICATION [Concomitant]
     Indication: ASTHMA
     Route: 065
  6. PAIN MEDICATION [Concomitant]
     Indication: PAIN
     Route: 065
  7. SLEEPING PILLS [Concomitant]
     Indication: SLEEP DISORDER
     Route: 065
  8. OTHER MEDICATION [Concomitant]
     Route: 065

REACTIONS (4)
  - HALLUCINATION [None]
  - MICTURITION DISORDER [None]
  - NEUROPATHY PERIPHERAL [None]
  - SLEEP DISORDER [None]
